FAERS Safety Report 4692443-6 (Version None)
Quarter: 2005Q2

REPORT INFORMATION
  Report Type: 
  Country: None (occurrence: None)
  Receive Date: 20050613
  Receipt Date: 20050421
  Transmission Date: 20051028
  Serious: Yes (Other)
  Sender: FDA-Public Use
  Company Number: 2004-00670

PATIENT
  Age: 60 Year
  Sex: Male

DRUGS (2)
  1. VELCADE [Suspect]
     Indication: MULTIPLE MYELOMA
     Dosage: SEE IMAGE
     Route: 042
     Dates: start: 20040908, end: 20040927
  2. VELCADE [Suspect]
     Indication: MULTIPLE MYELOMA
     Dosage: SEE IMAGE
     Route: 042
     Dates: start: 20041001, end: 20041004

REACTIONS (4)
  - NEUTROPENIA [None]
  - RASH ERYTHEMATOUS [None]
  - RASH MACULAR [None]
  - THROMBOCYTOPENIA [None]
